FAERS Safety Report 7620031-8 (Version None)
Quarter: 2011Q3

REPORT INFORMATION
  Report Type: 
  Country: None (occurrence: None)
  Receive Date: 20110719
  Receipt Date: 20110715
  Transmission Date: 20111222
  Serious: No
  Sender: FDA-Public Use
  Company Number: US-PFIZER INC-2011160812

PATIENT
  Sex: Female
  Weight: 50.34 kg

DRUGS (1)
  1. ALAVERT [Suspect]
     Dosage: 10 MG, DAILY
     Route: 048
     Dates: start: 20110627, end: 20110630

REACTIONS (1)
  - RASH PRURITIC [None]
